FAERS Safety Report 9892356 (Version 4)
Quarter: 2015Q1

REPORT INFORMATION
  Report Type: Report from Study
  Country: IE (occurrence: IE)
  Receive Date: 20140212
  Receipt Date: 20150204
  Transmission Date: 20150721
  Serious: Yes (Hospitalization, Disabling)
  Sender: FDA-Public Use
  Company Number: PHHY2014IE017158

PATIENT
  Age: 33 Year
  Sex: Female

DRUGS (3)
  1. GILENYA [Suspect]
     Active Substance: FINGOLIMOD HYDROCHLORIDE
     Indication: PRODUCT USED FOR UNKNOWN INDICATION
     Route: 048
     Dates: start: 20130304
  2. TIZANIDINE (TIZANIDINE) [Concomitant]
     Active Substance: TIZANIDINE
     Indication: MUSCLE SPASTICITY
     Dosage: 2 MG, BID
     Route: 048
     Dates: start: 20140212
  3. GILENYA [Suspect]
     Active Substance: FINGOLIMOD HYDROCHLORIDE
     Dosage: 1 DF, QOD
     Route: 048
     Dates: start: 20130911, end: 20140203

REACTIONS (7)
  - Off label use [Unknown]
  - Multiple sclerosis [Recovering/Resolving]
  - Prescribed underdose [Unknown]
  - Central nervous system lesion [Not Recovered/Not Resolved]
  - Aphasia [Not Recovered/Not Resolved]
  - Lymphopenia [Not Recovered/Not Resolved]
  - Hemiparesis [Not Recovered/Not Resolved]

NARRATIVE: CASE EVENT DATE: 20130911
